FAERS Safety Report 4341883-3 (Version None)
Quarter: 2004Q2

REPORT INFORMATION
  Report Type: 
  Country: None (occurrence: None)
  Receive Date: 20040415
  Receipt Date: 20040331
  Transmission Date: 20050107
  Serious: Yes (Other)
  Sender: FDA-Public Use
  Company Number: US_011177791

PATIENT
  Age: 42 Year
  Sex: Female
  Weight: 122 kg

DRUGS (3)
  1. HUMULIN 70/30 [Suspect]
     Dosage: 70 U DAY
     Dates: start: 19970101
  2. HUMULIN R [Suspect]
     Indication: DIABETES MELLITUS
     Dates: start: 19980101, end: 19990101
  3. HUMULIN N [Suspect]
     Indication: DIABETES MELLITUS
     Dates: start: 19980101, end: 19990101

REACTIONS (13)
  - ARTERIOVENOUS GRAFT [None]
  - ASTHENIA [None]
  - BLOOD GLUCOSE DECREASED [None]
  - DIALYSIS [None]
  - MUSCLE CRAMP [None]
  - NERVE INJURY [None]
  - PAIN [None]
  - PARAESTHESIA [None]
  - PERIPHERAL COLDNESS [None]
  - POOR VENOUS ACCESS [None]
  - RENAL FAILURE [None]
  - THROMBOSIS [None]
  - VASCULAR ACCESS COMPLICATION [None]
